FAERS Safety Report 20638364 (Version 2)
Quarter: 2022Q1

REPORT INFORMATION
  Report Type: Spontaneous
  Country: DK (occurrence: DK)
  Receive Date: 20220325
  Receipt Date: 20220329
  Transmission Date: 20220423
  Serious: Yes (Hospitalization, Other)
  Sender: FDA-Public Use
  Company Number: None

PATIENT
  Age: 23 Year
  Sex: Female
  Weight: 67 kg

DRUGS (28)
  1. MOMETASONE FUROATE [Suspect]
     Active Substance: MOMETASONE FUROATE
     Dosage: 0.1 PERCENT, PRN (STRENGTH: 0.1 %)
     Route: 003
     Dates: start: 2013
  2. BUDESONIDE\FORMOTEROL FUMARATE [Suspect]
     Active Substance: BUDESONIDE\FORMOTEROL FUMARATE
     Indication: Asthma
     Dosage: DOSAGE INCREASED FROM 1DF TWICE A DAY TO 2DF TWICE A DAILY ON 13MAR2017, STRENGTH: 9+320 MICROGRAMS/
     Route: 055
     Dates: start: 20161014
  3. BUDESONIDE\FORMOTEROL FUMARATE [Suspect]
     Active Substance: BUDESONIDE\FORMOTEROL FUMARATE
     Dosage: DOSAGE INCREASED FROM 1DF TWICE A DAY TO 2DF TWICE A DAILY ON 13MAR2017STRENGTH: 9+320 MICROGRAM/DOS
     Route: 055
     Dates: start: 20161014
  4. BUDESONIDE [Suspect]
     Active Substance: BUDESONIDE
     Indication: Asthma
     Dosage: 1 DF MORNING+2 DF EVENING, AND REDUCED TO 1DF A DAY ON UNKNOWN DATE. STRENGTH: 200 ?G/DOSIS
     Route: 055
     Dates: start: 201610
  5. FLUTICASONE FUROATE [Suspect]
     Active Substance: FLUTICASONE FUROATE
     Indication: Rhinorrhoea
     Dosage: 27.5 MICROGRAM, QD (STRENGTH: 27.5 MICROGRAMS)
     Route: 045
     Dates: start: 20170111
  6. IOPAMIDOL [Suspect]
     Active Substance: IOPAMIDOL
     Dosage: UNK
  7. ETHINYL ESTRADIOL\LEVONORGESTREL [Concomitant]
     Active Substance: ETHINYL ESTRADIOL\LEVONORGESTREL
     Indication: Contraception
     Dosage: 1 DOSAGE FORM, QD (STRENGTH: 0.15 + 0.03 MG)
     Route: 048
     Dates: start: 20170829, end: 201804
  8. ETHINYL ESTRADIOL\LEVONORGESTREL [Concomitant]
     Active Substance: ETHINYL ESTRADIOL\LEVONORGESTREL
     Dosage: UNK
  9. ETHINYL ESTRADIOL\LEVONORGESTREL [Concomitant]
     Active Substance: ETHINYL ESTRADIOL\LEVONORGESTREL
     Dosage: UNK
  10. FEXOFENADINE [Concomitant]
     Active Substance: FEXOFENADINE HYDROCHLORIDE
     Indication: Seasonal allergy
     Dosage: 120 MILLIGRAM, QD (STRENGTH: 120 MG)
     Route: 048
     Dates: start: 20160425
  11. FEXOFENADINE [Concomitant]
     Active Substance: FEXOFENADINE HYDROCHLORIDE
     Dosage: 120 MG
     Route: 048
     Dates: start: 20160425
  12. FEXOFENADINE [Concomitant]
     Active Substance: FEXOFENADINE HYDROCHLORIDE
     Dosage: UNK
  13. MONTELUKAST\MONTELUKAST SODIUM [Concomitant]
     Active Substance: MONTELUKAST\MONTELUKAST SODIUM
     Indication: Asthma
     Dosage: STRENGTH: 10 MG; 10 MILLIGRAM, QD
     Route: 048
     Dates: start: 20170111, end: 201711
  14. ALBUTEROL SULFATE [Concomitant]
     Active Substance: ALBUTEROL SULFATE
     Indication: Asthma
     Dosage: STRENGTH: 200 MICROGRAMS/DOSE
     Route: 055
     Dates: start: 20161014
  15. ALBUTEROL SULFATE [Concomitant]
     Active Substance: ALBUTEROL SULFATE
     Dosage: UNK
  16. DESLORATADINE [Concomitant]
     Active Substance: DESLORATADINE
     Indication: Seasonal allergy
     Dosage: STRENGTH: 5 MG.
     Route: 048
     Dates: start: 20170111
  17. DESLORATADINE [Concomitant]
     Active Substance: DESLORATADINE
     Dosage: UNK
  18. OLOPATADINE [Concomitant]
     Active Substance: OLOPATADINE
     Indication: Eye infection
     Dosage: 2 GTT DROPS, QD (STRENGTH: 1 MG/ML. DOSE: IN BOTH EYES)
     Route: 050
     Dates: start: 20170111
  19. OLOPATADINE [Concomitant]
     Active Substance: OLOPATADINE
     Dosage: UNK
  20. OLOPATADINE [Concomitant]
     Active Substance: OLOPATADINE
     Dosage: UNK
  21. FLUTICASONE [Concomitant]
     Active Substance: FLUTICASONE
     Indication: Rhinorrhoea
     Dosage: STRENGTH: 27.5 MICROGRAMS; 1 DOSAGE FORM, QD
     Route: 045
     Dates: start: 20170111
  22. FLUTICASONE [Concomitant]
     Active Substance: FLUTICASONE
     Dosage: UNK
  23. ROXITHROMYCIN [Concomitant]
     Active Substance: ROXITHROMYCIN
     Indication: Otitis media
     Dosage: STRENGTH: 300 MG; 300 MILLIGRAM, QD
     Route: 048
     Dates: start: 20171228, end: 20180226
  24. ROXITHROMYCIN [Concomitant]
     Active Substance: ROXITHROMYCIN
     Dosage: UNK
  25. MILDISON LIPID [Concomitant]
     Indication: Rash
     Dosage: 1 DOSAGE FORM, BID (DOSE: 1 APPLICATION TWICE DAILY. STRENGTH: 10 MG/G)
     Route: 003
     Dates: start: 20141006
  26. MILDISON LIPID [Concomitant]
     Dosage: 1 DF, BID
     Route: 003
     Dates: start: 20141006
  27. MILDISON LIPID [Concomitant]
     Dosage: UNK
     Route: 003
     Dates: start: 20141006
  28. ALBUTEROL SULFATE [Concomitant]
     Active Substance: ALBUTEROL SULFATE
     Indication: Asthma
     Dosage: 200 MICROGRAM/DOSE
     Route: 055
     Dates: start: 20161014

REACTIONS (17)
  - Blood glucose abnormal [Unknown]
  - Nausea [Unknown]
  - Pruritus [Unknown]
  - Blood pressure abnormal [Unknown]
  - Immune system disorder [Unknown]
  - Arthralgia [Unknown]
  - Abdominal pain [Unknown]
  - Depressed level of consciousness [Unknown]
  - Body temperature fluctuation [Unknown]
  - Loss of personal independence in daily activities [Unknown]
  - Muscular weakness [Unknown]
  - Affective disorder [Unknown]
  - Adrenal insufficiency [Recovering/Resolving]
  - Fatigue [Recovering/Resolving]
  - Dyspnoea [Recovering/Resolving]
  - Dizziness [Unknown]
  - Prescribed overdose [Recovered/Resolved]

NARRATIVE: CASE EVENT DATE: 20170101
